FAERS Safety Report 6825915-6 (Version None)
Quarter: 2010Q3

REPORT INFORMATION
  Report Type: 
  Country: None (occurrence: None)
  Receive Date: 20100709
  Receipt Date: 20100626
  Transmission Date: 20110219
  Serious: Yes (Other)
  Sender: FDA-Public Use
  Company Number: US-BAYER-201027195NA

PATIENT
  Sex: Female

DRUGS (1)
  1. YAZ [Suspect]
     Indication: CONTRACEPTION
     Dosage: SHE WAS TAKING ON 18-JUN-2010
     Route: 048
     Dates: end: 20100601

REACTIONS (1)
  - MYOCARDIAL INFARCTION [None]
